FAERS Safety Report 9817763 (Version 1)
Quarter: 2014Q1

REPORT INFORMATION
  Report Type: Spontaneous
  Country: US (occurrence: None)
  Receive Date: 20140110
  Receipt Date: 20140110
  Transmission Date: 20141002
  Serious: Yes (Hospitalization)
  Sender: FDA-Public Use
  Company Number: None

PATIENT
  Age: 70 Year
  Sex: Female

DRUGS (5)
  1. FORTEO [Suspect]
     Indication: OSTEOPOROSIS
     Route: 058
     Dates: start: 20131212
  2. FOLIC ACID [Concomitant]
  3. PREDNISONE [Concomitant]
  4. NORCO [Concomitant]
  5. ALLOPURINOL [Concomitant]

REACTIONS (1)
  - Myocardial infarction [None]
